FAERS Safety Report 13981030 (Version 1)
Quarter: 2017Q3

REPORT INFORMATION
  Report Type: Spontaneous
  Country: US (occurrence: US)
  Receive Date: 20170918
  Receipt Date: 20170918
  Transmission Date: 20171128
  Serious: No
  Sender: FDA-Public Use
  Company Number: US-TEVA-793788ACC

PATIENT
  Age: 67 Year
  Sex: Female
  Weight: 90.7 kg

DRUGS (4)
  1. OMEPRAZOLE. [Concomitant]
     Active Substance: OMEPRAZOLE
  2. FEXOFENADINE [Suspect]
     Active Substance: FEXOFENADINE\FEXOFENADINE HYDROCHLORIDE
     Indication: PRURITUS
     Dosage: SINGLE DOSE
     Route: 048
     Dates: start: 20170612, end: 20170612
  3. PREDNISONE. [Concomitant]
     Active Substance: PREDNISONE
  4. BABY ASPIRIN [Concomitant]
     Active Substance: ASPIRIN

REACTIONS (4)
  - Drug administered to patient of inappropriate age [Unknown]
  - Off label use [Unknown]
  - Lip swelling [Recovering/Resolving]
  - Urticaria [Recovering/Resolving]

NARRATIVE: CASE EVENT DATE: 20170612
